FAERS Safety Report 23038205 (Version 2)
Quarter: 2023Q4

REPORT INFORMATION
  Report Type: Spontaneous
  Country: JP (occurrence: JP)
  Receive Date: 20231006
  Receipt Date: 20231113
  Transmission Date: 20240109
  Serious: Yes (Other)
  Sender: FDA-Public Use
  Company Number: JP-BRISTOL-MYERS SQUIBB COMPANY-2023-140916

PATIENT
  Age: 73 Year
  Sex: Male

DRUGS (2)
  1. NIVOLUMAB [Suspect]
     Active Substance: NIVOLUMAB
     Indication: Oesophageal squamous cell carcinoma
     Route: 041
     Dates: start: 202209
  2. IPILIMUMAB [Suspect]
     Active Substance: IPILIMUMAB
     Indication: Oesophageal squamous cell carcinoma
     Route: 041
     Dates: start: 202209

REACTIONS (2)
  - Pemphigus [Recovering/Resolving]
  - Immune-mediated lung disease [Not Recovered/Not Resolved]
